FAERS Safety Report 6494925-3 (Version None)
Quarter: 2009Q4

REPORT INFORMATION
  Report Type: 
  Country: None (occurrence: None)
  Receive Date: 20091214
  Receipt Date: 20090415
  Transmission Date: 20100525
  Serious: Yes (Other)
  Sender: FDA-Public Use
  Company Number: US-BRISTOL-MYERS SQUIBB COMPANY-14581698

PATIENT
  Age: 18 Year
  Sex: Female

DRUGS (2)
  1. ABILIFY [Suspect]
     Indication: BIPOLAR DISORDER
     Dosage: ON 12FEB2009 DOSE REDUCED TO 15MG QD
     Route: 048
     Dates: start: 20050901
  2. CYMBALTA [Concomitant]
     Dosage: DRUG STOPPED.
     Dates: start: 20080901

REACTIONS (1)
  - OCULOGYRIC CRISIS [None]
